FAERS Safety Report 23158396 (Version 2)
Quarter: 2023Q4

REPORT INFORMATION
  Report Type: Report from Study
  Country: BR (occurrence: BR)
  Receive Date: 20231108
  Receipt Date: 20231111
  Transmission Date: 20240110
  Serious: Yes (Hospitalization, Other)
  Sender: FDA-Public Use
  Company Number: BR-002147023-NVSC2023BR236547

PATIENT
  Sex: Male
  Weight: 80 kg

DRUGS (2)
  1. ENTRESTO [Suspect]
     Active Substance: SACUBITRIL\VALSARTAN
     Indication: Cardiac failure
     Dosage: 200 MG, BID
     Route: 048
  2. ENTRESTO [Suspect]
     Active Substance: SACUBITRIL\VALSARTAN
     Dosage: 50 MG
     Route: 048

REACTIONS (7)
  - Endocarditis [Unknown]
  - COVID-19 [Unknown]
  - Syncope [Unknown]
  - Infected fistula [Unknown]
  - Malaise [Unknown]
  - Blood pressure decreased [Unknown]
  - Dizziness [Unknown]
